FAERS Safety Report 5099455-1 (Version None)
Quarter: 2006Q3

REPORT INFORMATION
  Report Type: 
  Country: None (occurrence: None)
  Receive Date: 20060908
  Receipt Date: 20060831
  Transmission Date: 20061208
  Serious: Yes (Other)
  Sender: FDA-Public Use
  Company Number: CH-JNJFOC-20031006228

PATIENT
  Age: 36 Year
  Sex: Male

DRUGS (4)
  1. REMICADE [Suspect]
     Indication: RHEUMATOID ARTHRITIS
     Route: 042
  2. REMICADE [Suspect]
     Indication: PUSTULAR PSORIASIS
     Dosage: WEEKS 0,2, + 6
     Route: 042
  3. LEFLUNOMIDE [Concomitant]
     Indication: RHEUMATOID ARTHRITIS
     Route: 048
  4. LEFLUNOMIDE [Concomitant]
     Indication: PUSTULAR PSORIASIS
     Dosage: 3 MONTH DURATION
     Route: 048

REACTIONS (1)
  - ECZEMA [None]
